FAERS Safety Report 18538686 (Version 1)
Quarter: 2020Q4

REPORT INFORMATION
  Report Type: Report from Study
  Country: NL (occurrence: NL)
  Receive Date: 20201123
  Receipt Date: 20201123
  Transmission Date: 20210114
  Serious: Yes (Death)
  Sender: FDA-Public Use
  Company Number: NL-CELGENEUS-NLD-20201105712

PATIENT

DRUGS (1)
  1. AG-221 [Suspect]
     Active Substance: ENASIDENIB
     Indication: PRODUCT USED FOR UNKNOWN INDICATION
     Route: 048
     Dates: start: 2020, end: 2020

REACTIONS (2)
  - Disease progression [Fatal]
  - Therapy non-responder [Unknown]

NARRATIVE: CASE EVENT DATE: 2020
